FAERS Safety Report 4460061-0 (Version None)
Quarter: 2004Q3

REPORT INFORMATION
  Report Type: 
  Country: None (occurrence: None)
  Receive Date: 20040928
  Receipt Date: 20031006
  Transmission Date: 20050211
  Serious: No
  Sender: FDA-Public Use
  Company Number: US-GLAXOSMITHKLINE-A0428971A

PATIENT
  Age: 60 Year
  Sex: Female
  Weight: 95.5 kg

DRUGS (8)
  1. SEREVENT [Suspect]
     Indication: ASTHMA
     Dosage: 1PUFF TWICE PER DAY
     Route: 055
     Dates: start: 20030804, end: 20030818
  2. AZMACORT [Concomitant]
  3. ZOCOR [Concomitant]
  4. ASPIRIN [Concomitant]
  5. NORVASC [Concomitant]
  6. SYNTHROID [Concomitant]
  7. ROXICET [Concomitant]
  8. SOMA [Concomitant]

REACTIONS (3)
  - APHONIA [None]
  - CANDIDIASIS [None]
  - DYSPNOEA [None]
